FAERS Safety Report 10062467 (Version 1)
Quarter: 2014Q1

REPORT INFORMATION
  Report Type: Spontaneous
  Country: US (occurrence: None)
  Receive Date: 20140313
  Receipt Date: 20140313
  Transmission Date: 20141002
  Serious: Yes (Disabling)
  Sender: FDA-Public Use
  Company Number: 1616615

PATIENT
  Sex: Female

DRUGS (3)
  1. METOCLOPRAMIDE INJECTION, USP, 5MG/ML FLIPTOP VIAL (METOCLOPRAMIDE) [Suspect]
     Indication: ABDOMINAL DISTENSION
  2. METOCLOPRAMIDE INJECTION, USP, 5MG/ML FLIPTOP VIAL (METOCLOPRAMIDE) [Suspect]
     Indication: DYSPEPSIA
  3. METOCLOPRAMIDE INJECTION, USP, 5MG/ML FLIPTOP VIAL (METOCLOPRAMIDE) [Suspect]
     Indication: REFLUX GASTRITIS

REACTIONS (3)
  - Nervous system disorder [None]
  - Extrapyramidal disorder [None]
  - Tardive dyskinesia [None]
